FAERS Safety Report 7769782-5 (Version None)
Quarter: 2011Q3

REPORT INFORMATION
  Report Type: 
  Country: None (occurrence: None)
  Receive Date: 20110922
  Receipt Date: 20100527
  Transmission Date: 20111222
  Serious: No
  Sender: FDA-Public Use
  Company Number: US-ASTRAZENECA-2010SE39346

PATIENT
  Sex: Female

DRUGS (5)
  1. PROMETHAZINE [Concomitant]
     Dates: start: 20080206
  2. SEROQUEL [Suspect]
     Route: 048
     Dates: start: 20071115
  3. EFFEXOR XR [Concomitant]
     Dates: start: 20080206
  4. CLONAZEPAM [Concomitant]
     Dates: start: 20070904
  5. TIZANIDINE HCL [Concomitant]
     Dates: start: 20080114

REACTIONS (1)
  - ILL-DEFINED DISORDER [None]
